FAERS Safety Report 8180491-3 (Version None)
Quarter: 2012Q1

REPORT INFORMATION
  Report Type: 
  Country: None (occurrence: None)
  Receive Date: 20120221
  Receipt Date: 20120207
  Transmission Date: 20120608
  Serious: Yes (Hospitalization)
  Sender: FDA-Public Use
  Company Number: AEUSA201200022

PATIENT
  Age: 59 Year
  Sex: Male
  Weight: 90.27 kg

DRUGS (27)
  1. IMMUNE GLOBULIN (HUMAN) [Suspect]
     Indication: POLYCHONDRITIS
     Dosage: 10 GM;1X;IV
     Route: 042
     Dates: start: 20120117, end: 20120117
  2. HYOSCYAMINE [Concomitant]
  3. PLAVIX [Concomitant]
  4. PULMICORT [Concomitant]
  5. SOLU-MEDROL [Concomitant]
  6. ZOFRAN /00955302/ [Concomitant]
  7. AMBIEN [Concomitant]
  8. IPRATROPIUM BROMIDE [Concomitant]
  9. BENADRYL /00000402/ [Concomitant]
  10. ALLEGRA-D /01554101/ [Concomitant]
  11. NEXIUM /01479303/ [Concomitant]
  12. NASACORT AQ [Concomitant]
  13. FERROUS SULFATE TAB [Concomitant]
  14. DOXEPIN HCL [Concomitant]
  15. TOPROL-XL [Concomitant]
  16. VYTORIN [Concomitant]
  17. METHOTREXATE [Concomitant]
  18. NEBIVOLOL /01339102/ [Concomitant]
  19. SYMBICORT [Concomitant]
  20. VICODIN [Concomitant]
  21. MIRAPEX [Concomitant]
  22. XOPENEX [Concomitant]
  23. ZOCOR [Concomitant]
  24. IBUPROFEN [Concomitant]
  25. CYMBALTA [Concomitant]
  26. ZETIA [Concomitant]
  27. PREDNISONE TAB [Concomitant]

REACTIONS (15)
  - BLOOD PRESSURE SYSTOLIC INCREASED [None]
  - RESPIRATORY RATE INCREASED [None]
  - BLOOD GLUCOSE INCREASED [None]
  - BLOOD UREA INCREASED [None]
  - BODY TEMPERATURE DECREASED [None]
  - WHEEZING [None]
  - DYSPNOEA EXERTIONAL [None]
  - HAEMATOCRIT DECREASED [None]
  - INFUSION RELATED REACTION [None]
  - FATIGUE [None]
  - BREATH SOUNDS ABNORMAL [None]
  - SINUS TACHYCARDIA [None]
  - CHEST PAIN [None]
  - COUGH [None]
  - INTERNATIONAL NORMALISED RATIO DECREASED [None]
